FAERS Safety Report 13883360 (Version 3)
Quarter: 2018Q2

REPORT INFORMATION
  Report Type: Spontaneous
  Country: JP (occurrence: JP)
  Receive Date: 20170818
  Receipt Date: 20180515
  Transmission Date: 20180711
  Serious: Yes (Hospitalization, Other)
  Sender: FDA-Public Use
  Company Number: JP-PFIZER INC-2017296161

PATIENT
  Age: 43 Year
  Sex: Male
  Weight: 87 kg

DRUGS (4)
  1. ADONA (AC-17) [Concomitant]
     Dosage: 30 G, AS NEEDED
  2. BENEFIX [Suspect]
     Active Substance: COAGULATION FACTOR IX RECOMBINANT HUMAN\ISOPROPYL ALCOHOL
     Indication: FACTOR IX DEFICIENCY
     Dosage: 2000 TO 4000 IU WHEN BLEEDING
     Route: 042
     Dates: start: 20101025
  3. TRANSAMIN [Concomitant]
     Active Substance: TRANEXAMIC ACID
     Dosage: 250 G, AS NEEDED
  4. CINAL [Concomitant]
     Active Substance: ASCORBIC ACID\CALCIUM PANTOTHENATE
     Dosage: 200 G, AS NEEDED

REACTIONS (5)
  - Gastric ulcer [Recovering/Resolving]
  - Arterial disorder [Not Recovered/Not Resolved]
  - Proteinuria [Unknown]
  - Gastrointestinal haemorrhage [Recovered/Resolved]
  - Thrombosis [Not Recovered/Not Resolved]

NARRATIVE: CASE EVENT DATE: 2011
